FAERS Safety Report 8119382-2 (Version None)
Quarter: 2012Q1

REPORT INFORMATION
  Report Type: 
  Country: None (occurrence: None)
  Receive Date: 20120207
  Receipt Date: 20120203
  Transmission Date: 20120608
  Serious: No
  Sender: FDA-Public Use
  Company Number: US-PFIZER INC-2012020323

PATIENT
  Sex: Female

DRUGS (1)
  1. GABAPENTIN [Suspect]
     Indication: FIBROMYALGIA
     Dosage: 600 MG, 2X/DAY

REACTIONS (2)
  - DRUG INEFFECTIVE [None]
  - PRURITUS [None]
